FAERS Safety Report 8911436 (Version 3)
Quarter: 2013Q1

REPORT INFORMATION
  Report Type: Spontaneous
  Country: US (occurrence: US)
  Receive Date: 20121115
  Receipt Date: 20130222
  Transmission Date: 20140127
  Serious: No
  Sender: FDA-Public Use
  Company Number: US-009507513-1211USA005736

PATIENT
  Age: 23 Year
  Sex: Female
  Weight: 68.27 kg

DRUGS (2)
  1. NEXPLANON [Suspect]
     Dosage: 1 STANDARD PACKAGE OF PF APPLICATION OF 1
     Dates: start: 20121107, end: 20121107
  2. NEXPLANON [Suspect]
     Dosage: 1 DF, UNK
     Route: 059
     Dates: start: 20121119

REACTIONS (3)
  - Device difficult to use [Recovered/Resolved]
  - Drug dose omission [Unknown]
  - No adverse event [Unknown]
